FAERS Safety Report 9349187 (Version 2)
Quarter: 2013Q3

REPORT INFORMATION
  Report Type: Report from Study
  Country: CA (occurrence: CA)
  Receive Date: 20130614
  Receipt Date: 20130708
  Transmission Date: 20140515
  Serious: Yes (Hospitalization, Other)
  Sender: FDA-Public Use
  Company Number: CA-ABBOTT-13P-028-1103145-00

PATIENT
  Sex: Male
  Weight: 81.72 kg

DRUGS (8)
  1. ENBREL [Concomitant]
     Indication: PSORIATIC ARTHROPATHY
  2. ENBREL [Concomitant]
     Indication: PSORIASIS
  3. IMURAN [Concomitant]
     Indication: PRODUCT USED FOR UNKNOWN INDICATION
     Dosage: LOW DOSE
  4. TECTA [Concomitant]
     Indication: PRODUCT USED FOR UNKNOWN INDICATION
  5. HUMIRA [Suspect]
     Indication: PSORIASIS
     Route: 058
     Dates: start: 20120503
  6. HUMIRA [Suspect]
     Dates: start: 20130603
  7. BUDESONIDE [Concomitant]
     Indication: PRODUCT USED FOR UNKNOWN INDICATION
     Dates: start: 201109
  8. AZATHIOPRINE [Concomitant]
     Indication: PRODUCT USED FOR UNKNOWN INDICATION
     Dosage: A DAY
     Dates: start: 201301

REACTIONS (4)
  - Abdominal adhesions [Recovered/Resolved]
  - Crohn^s disease [Recovered/Resolved]
  - Intestinal fibrosis [Recovered/Resolved]
  - Ileal stenosis [Recovered/Resolved]
